FAERS Safety Report 10206988 (Version 1)
Quarter: 2014Q2

REPORT INFORMATION
  Report Type: Spontaneous
  Country: US (occurrence: None)
  Receive Date: 20140527
  Receipt Date: 20140527
  Transmission Date: 20141212
  Serious: Yes (Hospitalization)
  Sender: FDA-Public Use
  Company Number: None

PATIENT
  Age: 55 Year
  Sex: Male

DRUGS (5)
  1. PIPERACILLIN/TAZOBACTAM [Suspect]
     Indication: OSTEOMYELITIS
     Route: 042
     Dates: start: 20120612, end: 20120626
  2. AMLODIPINE [Concomitant]
  3. PAROXETINE [Concomitant]
  4. VANCOMYCIN [Concomitant]
  5. GABAPENTIN [Concomitant]

REACTIONS (4)
  - Pyrexia [None]
  - Rash [None]
  - Stevens-Johnson syndrome [None]
  - Pyrexia [None]
